FAERS Safety Report 9455445 (Version 3)
Quarter: 2013Q4

REPORT INFORMATION
  Report Type: Spontaneous
  Country: DE (occurrence: DE)
  Receive Date: 20130813
  Receipt Date: 20131126
  Transmission Date: 20140711
  Serious: Yes (Hospitalization)
  Sender: FDA-Public Use
  Company Number: DE-JNJFOC-20130608523

PATIENT
  Age: 82 Year
  Sex: Male
  Weight: 82 kg

DRUGS (15)
  1. ZYTIGA [Suspect]
     Indication: PROSTATE CANCER METASTATIC
     Dosage: 4 TABLETS PER DAY
     Route: 048
     Dates: start: 20130504
  2. TORASEMIDE [Suspect]
     Indication: PRODUCT USED FOR UNKNOWN INDICATION
     Route: 065
  3. XIPAMIDE [Suspect]
     Indication: PRODUCT USED FOR UNKNOWN INDICATION
     Route: 065
  4. RIVAROXABAN [Suspect]
     Indication: PRODUCT USED FOR UNKNOWN INDICATION
     Route: 065
  5. PREDNISOLONE [Concomitant]
     Route: 048
  6. ZOMETA [Concomitant]
     Route: 065
  7. L-THYROX [Concomitant]
     Route: 065
  8. CANDESARTAN [Concomitant]
     Dosage: HALF OF 10 MG WAS GIVEN
     Route: 065
  9. BELOC ZOK [Concomitant]
     Dosage: THE PATIENT WAS TREATED WITH 1-0-0.5 MEDICATION
     Route: 065
  10. FENISTIL [Concomitant]
     Route: 065
  11. ACTRAPHANE [Concomitant]
     Dosage: DOSE: 16 IE AND 10 IE
     Route: 065
  12. FIRMAGON [Concomitant]
     Route: 065
  13. DOLORIN [Concomitant]
     Dosage: THE PATIENT WAS TREATED WITH A DOSE OF 3 X 1
     Route: 065
  14. XIPAMID [Concomitant]
     Dosage: THE PATIENT WAS TREATED WITH HALF OF 10 MG IN THE MORNING
     Route: 065
  15. CALISVIT [Concomitant]
     Route: 065

REACTIONS (2)
  - Haematuria [Recovered/Resolved]
  - International normalised ratio increased [Unknown]
